FAERS Safety Report 8593783-0 (Version None)
Quarter: 2012Q3

REPORT INFORMATION
  Report Type: 
  Country: None (occurrence: None)
  Receive Date: 20120814
  Receipt Date: 20120719
  Transmission Date: 20120928
  Serious: Yes (Other)
  Sender: FDA-Public Use
  Company Number: CN-BAXTER-2012BAX012184

PATIENT
  Sex: Male
  Weight: 65 kg

DRUGS (4)
  1. CEFPIRAMIDE [Suspect]
  2. SODIUM CHLORIDE INJ [Suspect]
     Dates: start: 20090728
  3. SODIUM CHLORIDE INJ [Suspect]
     Dates: start: 20090729
  4. SODIUM CHLORIDE INJ [Suspect]
     Indication: MEDICATION DILUTION
     Route: 041
     Dates: start: 20090608, end: 20090608

REACTIONS (1)
  - ANAPHYLACTOID REACTION [None]
